FAERS Safety Report 6070586-2 (Version None)
Quarter: 2009Q1

REPORT INFORMATION
  Report Type: 
  Country: None (occurrence: None)
  Receive Date: 20090209
  Receipt Date: 20090128
  Transmission Date: 20090719
  Serious: Yes (Death, Other)
  Sender: FDA-Public Use
  Company Number: US-PFIZER INC-2008099977

PATIENT

DRUGS (1)
  1. SUTENT [Suspect]
     Indication: METASTASES TO KIDNEY
     Dosage: 50 MG, 1X/DAY
     Route: 048

REACTIONS (2)
  - PLATELET COUNT DECREASED [None]
  - THROMBOTIC THROMBOCYTOPENIC PURPURA [None]
